FAERS Safety Report 10956001 (Version 1)
Quarter: 2015Q1

REPORT INFORMATION
  Report Type: Spontaneous
  Country: US (occurrence: None)
  Receive Date: 20150325
  Receipt Date: 20150325
  Transmission Date: 20150721
  Serious: Yes (Hospitalization)
  Sender: FDA-Public Use
  Company Number: None

PATIENT
  Age: 72 Year
  Sex: Male

DRUGS (2)
  1. FRAGMIN [Suspect]
     Active Substance: DALTEPARIN SODIUM
     Indication: DEEP VEIN THROMBOSIS
     Route: 058
  2. SUTENT [Suspect]
     Active Substance: SUNITINIB MALATE
     Indication: RENAL CELL CARCINOMA
     Route: 048

REACTIONS (9)
  - Confusional state [None]
  - Blood glucose decreased [None]
  - Dehydration [None]
  - Diarrhoea [None]
  - Stomatitis [None]
  - Nausea [None]
  - Urinary incontinence [None]
  - Decreased appetite [None]
  - Lethargy [None]

NARRATIVE: CASE EVENT DATE: 20150312
